FAERS Safety Report 19771170 (Version 2)
Quarter: 2021Q3

REPORT INFORMATION
  Report Type: Spontaneous
  Country: US (occurrence: US)
  Receive Date: 20210831
  Receipt Date: 20210831
  Transmission Date: 20211014
  Serious: No
  Sender: FDA-Public Use
  Company Number: US-INCYTE CORPORATION-2021IN007563

PATIENT

DRUGS (1)
  1. JAKAFI [Suspect]
     Active Substance: RUXOLITINIB
     Indication: MYELODYSPLASTIC SYNDROME
     Dosage: 5 MILLIGRAM, QOD
     Route: 048
     Dates: start: 202105

REACTIONS (3)
  - Off label use [Unknown]
  - Fatigue [Unknown]
  - Anaemia [Unknown]

NARRATIVE: CASE EVENT DATE: 202105
